FAERS Safety Report 4918758-1 (Version None)
Quarter: 2006Q1

REPORT INFORMATION
  Report Type: 
  Country: None (occurrence: None)
  Receive Date: 20060222
  Receipt Date: 20060116
  Transmission Date: 20060701
  Serious: Yes (Other)
  Sender: FDA-Public Use
  Company Number: 2006UW02474

PATIENT
  Age: 21 Year
  Sex: Male
  Weight: 90.9 kg

DRUGS (9)
  1. SEROQUEL [Suspect]
     Indication: SCHIZOPHRENIA
     Route: 048
     Dates: start: 20060112, end: 20060112
  2. SEROQUEL [Suspect]
     Route: 048
     Dates: start: 20060113, end: 20060113
  3. SEROQUEL [Suspect]
     Dosage: 75 MG AM, AND 50 MG
     Route: 048
     Dates: start: 20060114, end: 20060114
  4. SEROQUEL [Suspect]
     Route: 048
     Dates: start: 20060115, end: 20060115
  5. SEROQUEL [Suspect]
     Route: 048
     Dates: start: 20060115, end: 20060115
  6. SEROQUEL [Suspect]
     Route: 048
  7. RISPERDAL CONSTA [Concomitant]
     Indication: SCHIZOPHRENIA
     Dates: end: 20051228
  8. LORAZEPAM [Concomitant]
     Indication: AGITATION
  9. LORAZEPAM [Concomitant]
     Indication: INSOMNIA

REACTIONS (3)
  - DIZZINESS [None]
  - FEELING ABNORMAL [None]
  - PARAESTHESIA [None]
